FAERS Safety Report 21001028 (Version 3)
Quarter: 2022Q3

REPORT INFORMATION
  Report Type: Report from Study
  Country: US (occurrence: US)
  Receive Date: 20220624
  Receipt Date: 20220808
  Transmission Date: 20221026
  Serious: Yes (Other)
  Sender: FDA-Public Use
  Company Number: US-BRISTOL-MYERS SQUIBB COMPANY-2022-057092

PATIENT
  Age: 24 Year
  Sex: Female
  Weight: 79.83 kg

DRUGS (1)
  1. ZEPOSIA [Suspect]
     Active Substance: OZANIMOD HYDROCHLORIDE
     Indication: Colitis ulcerative
     Route: 048
     Dates: start: 20220603

REACTIONS (3)
  - Reflux gastritis [Unknown]
  - Haemorrhage [Unknown]
  - Product dose omission issue [Unknown]
